FAERS Safety Report 8205194-8 (Version None)
Quarter: 2012Q1

REPORT INFORMATION
  Report Type: 
  Country: None (occurrence: None)
  Receive Date: 20120313
  Receipt Date: 20120301
  Transmission Date: 20120608
  Serious: Yes (Hospitalization)
  Sender: FDA-Public Use
  Company Number: FR-ROCHE-1045107

PATIENT
  Sex: Female

DRUGS (19)
  1. PREDNISONE TAB [Concomitant]
  2. MYCOPHENOLATE MOFETIL (CELLCEPT) [Suspect]
     Dosage: DOSE DECREASED
     Route: 048
     Dates: start: 20120125
  3. FLUCONAZOLE [Suspect]
     Indication: OESOPHAGEAL CANDIDIASIS
     Route: 048
     Dates: start: 20120126, end: 20120203
  4. NEORAL [Concomitant]
     Dosage: DOSE INCREASED.
  5. ACETAMINOPHEN [Concomitant]
  6. DUPHALAC [Concomitant]
  7. VALGANCICLOVIR [Suspect]
     Dates: start: 20120206
  8. MYCOPHENOLATE MOFETIL (CELLCEPT) [Suspect]
  9. NEXIUM [Concomitant]
  10. ATHYMIL [Suspect]
     Indication: DEPRESSION
     Route: 048
     Dates: start: 20120131, end: 20120202
  11. CEFTAZIDIME [Concomitant]
  12. ASPIRIN [Concomitant]
  13. ATORVASTATIN [Concomitant]
  14. MYCOPHENOLATE MOFETIL (CELLCEPT) [Suspect]
     Indication: PROPHYLAXIS AGAINST TRANSPLANT REJECTION
     Route: 048
     Dates: start: 20111216
  15. NEORAL [Concomitant]
  16. NEORAL [Concomitant]
     Dosage: DOSE DECREASED.
     Dates: start: 20120126
  17. BISOPROLOL FUMARATE [Concomitant]
  18. VALGANCICLOVIR [Suspect]
     Indication: CYTOMEGALOVIRUS INFECTION
     Route: 048
     Dates: start: 20120123, end: 20120203
  19. BACTRIM DS [Concomitant]

REACTIONS (2)
  - AGRANULOCYTOSIS [None]
  - OESOPHAGEAL CANDIDIASIS [None]
